FAERS Safety Report 9516354 (Version 1)
Quarter: 2013Q1

REPORT INFORMATION
  Report Type: Spontaneous
  Country: CA (occurrence: None)
  Receive Date: 20130315
  Receipt Date: 20130315
  Transmission Date: 20140127
  Serious: Yes (Other)
  Sender: FDA-Public Use
  Company Number: 220466

PATIENT
  Age: 28 Year
  Sex: Female

DRUGS (1)
  1. HEPARIN [Suspect]
     Indication: ANTICOAGULANT THERAPY

REACTIONS (3)
  - Abortion spontaneous [None]
  - Off label use [None]
  - Maternal exposure during pregnancy [None]
